FAERS Safety Report 5376114-9 (Version None)
Quarter: 2007Q3

REPORT INFORMATION
  Report Type: 
  Country: None (occurrence: None)
  Receive Date: 20070702
  Receipt Date: 20070625
  Transmission Date: 20080115
  Serious: Yes (Death, Life-Threatening, Hospitalization)
  Sender: FDA-Public Use
  Company Number: B0470443A

PATIENT
  Age: 64 Year
  Sex: Female

DRUGS (3)
  1. LAMICTAL [Suspect]
     Indication: DEPRESSION
     Dosage: 75MG PER DAY
     Route: 048
     Dates: start: 20070221, end: 20070421
  2. DULOXETINE [Concomitant]
     Indication: DEPRESSION
     Route: 048
  3. LORMETAZEPAM [Concomitant]
     Route: 048

REACTIONS (6)
  - BLISTER [None]
  - DEATH [None]
  - ERYTHEMA [None]
  - PYREXIA [None]
  - SEPSIS [None]
  - STEVENS-JOHNSON SYNDROME [None]
